FAERS Safety Report 7787313-0 (Version None)
Quarter: 2011Q3

REPORT INFORMATION
  Report Type: 
  Country: None (occurrence: None)
  Receive Date: 20110929
  Receipt Date: 20110921
  Transmission Date: 20111222
  Serious: Yes (Life-Threatening, Hospitalization, Other)
  Sender: FDA-Public Use
  Company Number: GXKR2008DK08236

PATIENT
  Sex: Female
  Weight: 65.5 kg

DRUGS (11)
  1. PANTOPRAZOLE SODIUM [Interacting]
     Route: 048
  2. CYTARABINE [Interacting]
     Route: 048
  3. ANTIFUNGALS [Interacting]
     Route: 065
  4. ONDANSETRON [Suspect]
     Route: 048
     Dates: start: 20080122, end: 20080125
  5. VOGALENE [Interacting]
     Route: 048
  6. POTASSIUM CHLORIDE [Interacting]
     Route: 048
  7. ETOPOSIDE [Interacting]
     Route: 048
  8. NOXAFIL [Interacting]
     Indication: HEPATOSPLENIC CANDIDIASIS
     Dosage: 800 MG, QD
     Route: 048
     Dates: start: 20071019, end: 20080125
  9. DEXAMETHASONE [Interacting]
     Route: 048
  10. ACYCLOVIR [Interacting]
     Dosage: 200 MG, UNK
     Route: 048
  11. ALLOPURINOL [Interacting]
     Route: 048

REACTIONS (7)
  - SINOATRIAL BLOCK [None]
  - BRADYARRHYTHMIA [None]
  - SINUS TACHYCARDIA [None]
  - BRADYCARDIA [None]
  - DRUG INTERACTION [None]
  - ATRIOVENTRICULAR BLOCK SECOND DEGREE [None]
  - ARRHYTHMIA [None]
